FAERS Safety Report 19176264 (Version 1)
Quarter: 2021Q2

REPORT INFORMATION
  Report Type: Spontaneous
  Country: US (occurrence: US)
  Receive Date: 20210424
  Receipt Date: 20210424
  Transmission Date: 20210717
  Serious: Yes (Other)
  Sender: FDA-Public Use
  Company Number: NVSC2021US090735

PATIENT
  Age: 4 Year
  Sex: Female

DRUGS (1)
  1. CYCLOSPORINE. [Suspect]
     Active Substance: CYCLOSPORINE
     Indication: TOXIC EPIDERMAL NECROLYSIS
     Dosage: UNK (UP TO 6 MG/KG/DAY)
     Route: 065

REACTIONS (3)
  - Product use in unapproved indication [Unknown]
  - Toxic epidermal necrolysis [Unknown]
  - Disease progression [Unknown]
